FAERS Safety Report 19615095 (Version 1)
Quarter: 2021Q3

REPORT INFORMATION
  Report Type: Spontaneous
  Country: US (occurrence: US)
  Receive Date: 20210727
  Receipt Date: 20210727
  Transmission Date: 20211014
  Serious: No
  Sender: FDA-Public Use
  Company Number: US-ASTRAZENECA-2021A625669

PATIENT
  Sex: Female

DRUGS (16)
  1. SEROQUEL [Suspect]
     Active Substance: QUETIAPINE FUMARATE
     Indication: INSOMNIA
     Dosage: 20 MINUTES BEFORE BEDTIME
     Route: 048
  2. KLONOPIN [Concomitant]
     Active Substance: CLONAZEPAM
     Dosage: TAKING 3 FOURTHS OF A 3RD PILL, TAKING EXTRA QUARTER
     Route: 065
  3. SEROQUEL [Suspect]
     Active Substance: QUETIAPINE FUMARATE
     Indication: AFFECTIVE DISORDER
     Dosage: AT BEDTIME
     Route: 048
  4. SEROQUEL [Suspect]
     Active Substance: QUETIAPINE FUMARATE
     Indication: BIPOLAR II DISORDER
     Dosage: 20 MINUTES BEFORE BEDTIME
     Route: 048
  5. SEROQUEL [Suspect]
     Active Substance: QUETIAPINE FUMARATE
     Indication: AFFECTIVE DISORDER
     Dosage: 20 MINUTES BEFORE BEDTIME
     Route: 048
  6. KLONOPIN [Concomitant]
     Active Substance: CLONAZEPAM
     Dosage: 1 HALF MG
     Route: 065
  7. CELEXA [Concomitant]
     Active Substance: CITALOPRAM HYDROBROMIDE
     Dosage: WAS TAKING THE LOWEST DOSE, ON 5, NOW OFF IT
  8. TRINTELLIX [Concomitant]
     Active Substance: VORTIOXETINE HYDROBROMIDE
     Dosage: 10 MG AND 5 MG THEN IN CUT IN HALF 2.5 MG, THEN STOPPED,
  9. TRAZODONE [Concomitant]
     Active Substance: TRAZODONE HYDROCHLORIDE
     Dosage: 150.0MG UNKNOWN
  10. SEROQUEL [Suspect]
     Active Substance: QUETIAPINE FUMARATE
     Indication: BIPOLAR II DISORDER
     Dosage: AT BEDTIME
     Route: 048
  11. DEPAKOTE [Concomitant]
     Active Substance: DIVALPROEX SODIUM
  12. SEROQUEL [Suspect]
     Active Substance: QUETIAPINE FUMARATE
     Indication: INSOMNIA
     Dosage: AT BEDTIME
     Route: 048
  13. TRANQUILIZER [Concomitant]
     Active Substance: UNSPECIFIED INGREDIENT
     Route: 065
  14. LITHIUM. [Concomitant]
     Active Substance: LITHIUM
  15. KLONOPIN [Concomitant]
     Active Substance: CLONAZEPAM
     Dosage: 2 PILLS, 1 MG, AND TAKING LITTLE OVER HALF A THIRD PILL
     Route: 065
  16. TOFRANIL [Concomitant]
     Active Substance: IMIPRAMINE HYDROCHLORIDE

REACTIONS (12)
  - Drug abuse [Unknown]
  - Insomnia [Unknown]
  - Antidepressant therapy [Unknown]
  - Intentional product use issue [Unknown]
  - Drug ineffective [Unknown]
  - Depression [Unknown]
  - Mood altered [Recovering/Resolving]
  - Antiallergic therapy [Unknown]
  - Anxiety [Unknown]
  - Depressed mood [Unknown]
  - Bipolar II disorder [Unknown]
  - Insomnia [Not Recovered/Not Resolved]
